FAERS Safety Report 11921167 (Version 3)
Quarter: 2016Q1

REPORT INFORMATION
  Report Type: Report from Study
  Country: US (occurrence: US)
  Receive Date: 20160115
  Receipt Date: 20160204
  Transmission Date: 20160526
  Serious: Yes (Other)
  Sender: FDA-Public Use
  Company Number: US-CELGENE-USA-2016011070

PATIENT
  Age: 64 Year
  Sex: Female
  Weight: 124.4 kg

DRUGS (2)
  1. CC-10004 [Suspect]
     Active Substance: APREMILAST
     Indication: PSORIATIC ARTHROPATHY
     Route: 048
     Dates: start: 20110920, end: 20151207
  2. CC-10004 [Suspect]
     Active Substance: APREMILAST
     Route: 048
     Dates: start: 20151218, end: 20160104

REACTIONS (1)
  - Squamous cell carcinoma of skin [Recovered/Resolved]

NARRATIVE: CASE EVENT DATE: 20151208
